FAERS Safety Report 8018492-8 (Version None)
Quarter: 2012Q1

REPORT INFORMATION
  Report Type: 
  Country: None (occurrence: None)
  Receive Date: 20120103
  Receipt Date: 20111222
  Transmission Date: 20120608
  Serious: Yes (Other)
  Sender: FDA-Public Use
  Company Number: US-BAYER-2011-034704

PATIENT
  Age: 37 Year
  Sex: Female
  Weight: 77 kg

DRUGS (6)
  1. QVAR 40 [Concomitant]
     Indication: ASTHMA
     Dosage: UNK
     Dates: start: 20010101
  2. ALBUTEROL [Concomitant]
     Indication: ASTHMA
     Dosage: UNK
     Dates: start: 20010901
  3. ASMANEX TWISTHALER [Concomitant]
     Indication: ASTHMA
     Dosage: UNK
     Dates: start: 20010101
  4. YAZ [Suspect]
     Indication: CYST
  5. SINGULAIR [Concomitant]
     Indication: ASTHMA
     Dosage: UNK
     Dates: start: 20010101
  6. YAZ [Suspect]
     Indication: PREMENSTRUAL SYNDROME
     Dosage: UNK
     Route: 048
     Dates: start: 20061130, end: 20080311

REACTIONS (8)
  - GALLBLADDER DISORDER [None]
  - POST CHOLECYSTECTOMY SYNDROME [None]
  - GASTROINTESTINAL DISORDER [None]
  - GALLBLADDER PAIN [None]
  - PSYCHOLOGICAL TRAUMA [None]
  - CHOLECYSTITIS CHRONIC [None]
  - ANXIETY [None]
  - ANHEDONIA [None]
